FAERS Safety Report 5392385-7 (Version None)
Quarter: 2007Q3

REPORT INFORMATION
  Report Type: 
  Country: None (occurrence: None)
  Receive Date: 20070720
  Receipt Date: 20070713
  Transmission Date: 20080115
  Serious: Yes (Hospitalization)
  Sender: FDA-Public Use
  Company Number: A0665002A

PATIENT
  Sex: Female

DRUGS (1)
  1. ARIXTRA [Suspect]
     Dates: start: 20060801, end: 20060801

REACTIONS (3)
  - BLOOD DISORDER [None]
  - CARDIAC ARREST [None]
  - HAEMORRHAGE [None]
